FAERS Safety Report 9873353 (Version 11)
Quarter: 2015Q2

REPORT INFORMATION
  Report Type: Report from Study
  Country: CA (occurrence: CA)
  Receive Date: 20140206
  Receipt Date: 20150520
  Transmission Date: 20150821
  Serious: Yes (Other)
  Sender: FDA-Public Use
  Company Number: CA-ROCHE-1342211

PATIENT
  Sex: Female

DRUGS (7)
  1. AROMASIN [Concomitant]
     Active Substance: EXEMESTANE
  2. TAXOL [Suspect]
     Active Substance: PACLITAXEL
     Indication: BREAST CANCER
     Route: 065
     Dates: start: 20150109
  3. CIPROLEX [Concomitant]
     Active Substance: CIPROFLOXACIN HYDROCHLORIDE
     Route: 065
  4. PERJETA [Suspect]
     Active Substance: PERTUZUMAB
     Indication: HER-2 POSITIVE BREAST CANCER
     Route: 042
     Dates: start: 20150130, end: 20150424
  5. ZOLADEX [Concomitant]
     Active Substance: GOSERELIN ACETATE
     Route: 065
  6. HERCEPTIN [Suspect]
     Active Substance: TRASTUZUMAB
     Indication: BREAST CANCER METASTATIC
     Route: 042
     Dates: start: 20150130, end: 20150424
  7. KADCYLA [Suspect]
     Active Substance: ADO-TRASTUZUMAB EMTANSINE
     Indication: HER-2 POSITIVE BREAST CANCER
     Route: 042
     Dates: start: 20131023, end: 20141121

REACTIONS (18)
  - Chest pain [Recovered/Resolved]
  - Cough [Unknown]
  - Muscle spasms [Unknown]
  - Nausea [Unknown]
  - Scratch [Unknown]
  - Fatigue [Unknown]
  - Abdominal distension [Recovered/Resolved]
  - Diarrhoea [Recovered/Resolved]
  - Platelet count decreased [Unknown]
  - Chest discomfort [Unknown]
  - Constipation [Recovered/Resolved]
  - Nasopharyngitis [Unknown]
  - Back pain [Unknown]
  - Neutrophil count decreased [Unknown]
  - Malignant neoplasm progression [Unknown]
  - Hypoaesthesia [Unknown]
  - Paraesthesia [Unknown]
  - Epistaxis [Unknown]

NARRATIVE: CASE EVENT DATE: 2015
